FAERS Safety Report 9756824 (Version 3)
Quarter: 2014Q2

REPORT INFORMATION
  Report Type: Report from Study
  Country: VE (occurrence: VE)
  Receive Date: 20131213
  Receipt Date: 20140509
  Transmission Date: 20141212
  Serious: Yes (Death, Other)
  Sender: FDA-Public Use
  Company Number: VE-ABBVIE-13P-178-1170822-00

PATIENT
  Sex: Male

DRUGS (2)
  1. ZEMPLAR [Suspect]
     Indication: RENAL FAILURE CHRONIC
     Route: 042
     Dates: start: 20120712, end: 20121211
  2. ZEMPLAR [Suspect]
     Indication: RENAL FAILURE

REACTIONS (2)
  - Cerebrovascular disorder [Fatal]
  - Renal failure chronic [Unknown]
